FAERS Safety Report 18470663 (Version 13)
Quarter: 2021Q1

REPORT INFORMATION
  Report Type: Report from Study
  Country: CO (occurrence: CO)
  Receive Date: 20201106
  Receipt Date: 20210326
  Transmission Date: 20210419
  Serious: Yes (Other)
  Sender: FDA-Public Use
  Company Number: CO-TAKEDA-CO202016464

PATIENT
  Age: 54 Year
  Sex: Male
  Weight: 96 kg

DRUGS (18)
  1. ICATIBANT [Suspect]
     Active Substance: ICATIBANT ACETATE
     Dosage: 30MG/3ML
     Route: 058
     Dates: start: 20200926
  2. ICATIBANT [Suspect]
     Active Substance: ICATIBANT ACETATE
     Dosage: 30MG/3ML
     Route: 058
     Dates: start: 20181130
  3. ICATIBANT [Suspect]
     Active Substance: ICATIBANT ACETATE
     Dosage: 30MG/3ML
     Route: 058
     Dates: start: 20181130
  4. ICATIBANT [Suspect]
     Active Substance: ICATIBANT ACETATE
     Dosage: 30MG/3ML
     Route: 058
     Dates: start: 20181130
  5. ICATIBANT [Suspect]
     Active Substance: ICATIBANT ACETATE
     Dosage: 30MG/3ML
     Route: 058
     Dates: start: 20200626, end: 20200627
  6. ICATIBANT [Suspect]
     Active Substance: ICATIBANT ACETATE
     Dosage: 30MG/3ML
     Route: 058
     Dates: start: 20200626, end: 20200627
  7. ICATIBANT [Suspect]
     Active Substance: ICATIBANT ACETATE
     Dosage: 30MG/3ML
     Route: 058
     Dates: start: 20181130
  8. ICATIBANT [Suspect]
     Active Substance: ICATIBANT ACETATE
     Dosage: 30MG/3 ML
     Route: 058
     Dates: start: 20200916, end: 20200917
  9. ICATIBANT [Suspect]
     Active Substance: ICATIBANT ACETATE
     Dosage: 30MG/3ML
     Route: 058
     Dates: start: 20200926
  10. ICATIBANT [Suspect]
     Active Substance: ICATIBANT ACETATE
     Dosage: 30MG/3ML , MAXIMUM 3 SYRINGES IN 24HRS
     Route: 058
     Dates: start: 20181130
  11. ICATIBANT [Suspect]
     Active Substance: ICATIBANT ACETATE
     Dosage: 30MG/3ML , MAXIMUM 3 SYRINGES IN 24HRS
     Route: 058
     Dates: start: 20181130
  12. ICATIBANT [Suspect]
     Active Substance: ICATIBANT ACETATE
     Dosage: 30MG/3ML
     Route: 058
     Dates: start: 20181130
  13. ICATIBANT [Suspect]
     Active Substance: ICATIBANT ACETATE
     Dosage: 30MG/3ML
     Route: 058
     Dates: start: 20181130
  14. ICATIBANT [Suspect]
     Active Substance: ICATIBANT ACETATE
     Dosage: 30MG/3 ML
     Route: 058
     Dates: start: 20200916, end: 20200917
  15. ICATIBANT [Suspect]
     Active Substance: ICATIBANT ACETATE
     Indication: HEREDITARY ANGIOEDEMA
     Dosage: 30 MILLIGRAM, 1 SYRINGE(1SYRINGE EVERY6H, NO MORE THAN 3 SYRINGE IN 24 HR.)
     Route: 058
     Dates: start: 20180930
  16. ICATIBANT [Suspect]
     Active Substance: ICATIBANT ACETATE
     Dosage: 30MG/3ML
     Route: 058
     Dates: start: 20200610
  17. ICATIBANT [Suspect]
     Active Substance: ICATIBANT ACETATE
     Indication: HEREDITARY ANGIOEDEMA
     Dosage: 30 MILLIGRAM, 1 SYRINGE(1SYRINGE EVERY6H, NO MORE THAN 3 SYRINGE IN 24 HR.)
     Route: 058
     Dates: start: 20180930
  18. ICATIBANT [Suspect]
     Active Substance: ICATIBANT ACETATE
     Dosage: 30MG/3ML
     Route: 058
     Dates: start: 20200610

REACTIONS (6)
  - Oedema peripheral [Recovering/Resolving]
  - Ear infection fungal [Recovering/Resolving]
  - Tooth infection [Unknown]
  - Back pain [Not Recovered/Not Resolved]
  - Arthropod sting [Recovered/Resolved]
  - Hereditary angioedema [Recovered/Resolved]

NARRATIVE: CASE EVENT DATE: 20200517
